FAERS Safety Report 26113917 (Version 1)
Quarter: 2025Q4

REPORT INFORMATION
  Report Type: Spontaneous
  Country: US (occurrence: US)
  Receive Date: 20251202
  Receipt Date: 20251202
  Transmission Date: 20260118
  Serious: Yes (Hospitalization, Other)
  Sender: SANOFI AVENTIS
  Company Number: US-DialogSolutions-SAAVPROD-PI846627-C1

PATIENT
  Age: 29 Year
  Sex: Female

DRUGS (4)
  1. LOVENOX [Suspect]
     Active Substance: ENOXAPARIN SODIUM
     Dosage: 30 MG, BID
     Route: 058
  2. ASPIRIN [Suspect]
     Active Substance: ASPIRIN
     Dosage: 81 MG,QD
     Route: 048
  3. HEPARIN [Suspect]
     Active Substance: HEPARIN SODIUM
     Indication: Pulmonary embolism
     Dosage: UNK
     Route: 042
  4. HEPARIN [Suspect]
     Active Substance: HEPARIN SODIUM
     Dosage: UNK, Q8H
     Route: 058

REACTIONS (14)
  - Vena cava thrombosis [Recovered/Resolved]
  - Abdominal pain [Recovered/Resolved]
  - Intra-abdominal fluid collection [Recovered/Resolved]
  - Hypovolaemia [Recovered/Resolved]
  - Oliguria [Recovered/Resolved]
  - Thrombosis [Recovered/Resolved]
  - Exposure during pregnancy [Recovered/Resolved]
  - Abdominal wall haematoma [Recovered/Resolved]
  - Retroperitoneal haematoma [Recovered/Resolved]
  - Uterine obstruction [Recovered/Resolved]
  - Peritoneal haematoma [Recovered/Resolved]
  - Broad ligament haematoma [Recovered/Resolved]
  - Subfascial haematoma [Recovered/Resolved]
  - Haemorrhage [Recovered/Resolved]
